FAERS Safety Report 5405508-8 (Version None)
Quarter: 2007Q3

REPORT INFORMATION
  Report Type: 
  Country: None (occurrence: None)
  Receive Date: 20070803
  Receipt Date: 20070723
  Transmission Date: 20080115
  Serious: Yes (Other)
  Sender: FDA-Public Use
  Company Number: GB-PFIZER INC-2007061144

PATIENT
  Sex: Female

DRUGS (6)
  1. NEURONTIN [Suspect]
     Indication: EPILEPSY
     Route: 048
  2. LISINOPRIL [Concomitant]
  3. HORMONIN [Concomitant]
  4. NORTRIPTYLINE HCL [Concomitant]
  5. DIHYDROCODEINE BITARTRATE INJ [Concomitant]
  6. ALL OTHER THERAPEUTIC PRODUCTS [Concomitant]

REACTIONS (3)
  - BACK DISORDER [None]
  - FAECAL INCONTINENCE [None]
  - URINARY INCONTINENCE [None]
